FAERS Safety Report 8921530 (Version 1)
Quarter: 2012Q4

REPORT INFORMATION
  Report Type: 
  Country: CH (occurrence: CH)
  Receive Date: 20121121
  Receipt Date: 20121121
  Transmission Date: 20130627
  Serious: Yes (Hospitalization)
  Sender: FDA-Public Use
  Company Number: CH-ROCHE-246281

PATIENT
  Age: 71 Year
  Sex: Male
  Weight: 55 kg

DRUGS (15)
  1. ROCEPHIN [Suspect]
     Indication: PRODUCT USED FOR UNKNOWN INDICATION
     Route: 042
     Dates: start: 20000826, end: 20000828
  2. ANTRA MUPS [Suspect]
     Indication: PRODUCT USED FOR UNKNOWN INDICATION
     Route: 048
     Dates: start: 20000802, end: 20000829
  3. VIOXX [Suspect]
     Indication: PRODUCT USED FOR UNKNOWN INDICATION
     Route: 048
     Dates: start: 20000730, end: 20000829
  4. SURMONTIL [Concomitant]
     Route: 048
     Dates: start: 20000726, end: 20000822
  5. HALDOL [Concomitant]
     Dosage: Form Strength=2 MG/ML
     Route: 048
     Dates: start: 20000726, end: 20000827
  6. SERESTA [Concomitant]
     Dosage: NOT ADMINISTERED 31 JUL TO 5 AUG INCLUSIVE.
     Route: 048
     Dates: start: 20000726, end: 20000807
  7. ZINAT [Concomitant]
     Route: 065
     Dates: start: 20000729, end: 20000815
  8. MST-CONTINUS [Concomitant]
     Route: 048
     Dates: start: 20000728, end: 20000809
  9. FLAGYL [Concomitant]
     Route: 065
     Dates: start: 20000803, end: 20000815
  10. ASPIRIN CARDIO [Concomitant]
     Route: 048
     Dates: start: 20000803, end: 20000829
  11. FRAGMIN [Concomitant]
     Route: 058
  12. ARICEPT [Concomitant]
     Route: 065
  13. CALCIMAGON [Concomitant]
     Route: 065
  14. PREDNISONE [Concomitant]
     Route: 048
     Dates: start: 20000731
  15. CITALOPRAM [Concomitant]
     Route: 048
     Dates: start: 20000821

REACTIONS (1)
  - Hepatocellular injury [Recovering/Resolving]
